FAERS Safety Report 9268693 (Version 1)
Quarter: 2013Q2

REPORT INFORMATION
  Report Type: Spontaneous
  Country: US (occurrence: US)
  Receive Date: 20130502
  Receipt Date: 20130502
  Transmission Date: 20140414
  Serious: No
  Sender: FDA-Public Use
  Company Number: US-ALEXION-A201300084

PATIENT
  Sex: Female
  Weight: 92 kg

DRUGS (18)
  1. SOLIRIS 300MG [Suspect]
     Indication: HAEMOLYTIC URAEMIC SYNDROME
     Dosage: 900 MG, QW
     Route: 042
     Dates: start: 20120519, end: 20120608
  2. SOLIRIS 300MG [Suspect]
     Dosage: 1200 MG, Q2W
     Route: 042
     Dates: start: 20120615, end: 20120807
  3. SOLIRIS 300MG [Suspect]
     Dosage: 1200 MG, TIW
     Route: 042
     Dates: start: 20120821
  4. NORVASC [Concomitant]
     Dosage: 5 MG, QD
     Route: 048
     Dates: start: 201206
  5. METOPROLOL TARTRATE [Concomitant]
     Dosage: 50 MG, BID
     Route: 048
     Dates: start: 201206
  6. LYRICA [Concomitant]
     Dosage: 100 MG, QD, AT HS
     Route: 048
     Dates: start: 20120827
  7. LASIX [Concomitant]
     Dosage: 80 MG, TID
     Route: 048
     Dates: start: 20120606
  8. FAMOTIDINE [Concomitant]
     Dosage: 20 MG, QD
     Route: 048
     Dates: start: 20120713
  9. MULTIVITAMIN [Concomitant]
     Dosage: 1 DF, QD
     Route: 048
  10. AMBIEN [Concomitant]
     Dosage: 5 MG, PRN, AT BEDTIME
     Dates: start: 2013
  11. ACETAMINOPHEN [Concomitant]
     Dosage: 650 MG, PRN, Q6 HOURS
     Route: 048
     Dates: start: 20120606
  12. POTASSIUM CHLORIDE [Concomitant]
     Dosage: 20 MEQ, QD
     Route: 048
     Dates: start: 20120606
  13. PROCHLORPERAZINE MALEATE [Concomitant]
     Dosage: 10 MG, PRN, Q6 HOURS
     Route: 048
     Dates: start: 201206
  14. VITAMIN D [Concomitant]
     Dosage: 50000 IU, QW
     Route: 048
  15. PREDNISONE [Concomitant]
     Dosage: 5 MG, QD
     Route: 048
  16. BENADRYL [Concomitant]
     Dosage: UNK
  17. METHYLPREDNISOLONE SODIUM SUCCINATE [Concomitant]
     Dosage: UNK
  18. FOLIC ACID [Concomitant]
     Dosage: UNK

REACTIONS (2)
  - Platelet count abnormal [Recovered/Resolved]
  - Constipation [Unknown]
